FAERS Safety Report 8936102 (Version 2)
Quarter: 2013Q1

REPORT INFORMATION
  Report Type: Spontaneous
  Country: US (occurrence: US)
  Receive Date: 20121130
  Receipt Date: 20130128
  Transmission Date: 20140127
  Serious: No
  Sender: FDA-Public Use
  Company Number: US-PFIZER INC-2012260328

PATIENT
  Age: 63 Year
  Sex: Male

DRUGS (2)
  1. INLYTA [Suspect]
     Indication: RENAL CANCER
     Dosage: 5 MG, 2X/DAY
     Dates: start: 20120827
  2. INLYTA [Suspect]
     Dosage: 10 MG, UNK
     Dates: start: 20120828

REACTIONS (2)
  - Disease progression [Unknown]
  - Renal cancer [Unknown]
